FAERS Safety Report 5200067-7 (Version None)
Quarter: 2007Q1

REPORT INFORMATION
  Report Type: 
  Country: None (occurrence: None)
  Receive Date: 20070105
  Receipt Date: 20061226
  Transmission Date: 20070707
  Serious: Yes (Hospitalization)
  Sender: FDA-Public Use
  Company Number: FR-JNJFOC-20061206497

PATIENT
  Age: 38 Year
  Sex: Female

DRUGS (4)
  1. EPITOMAX [Suspect]
     Indication: EPILEPSY
     Route: 048
  2. APROVEL [Interacting]
     Indication: DRUG USE FOR UNKNOWN INDICATION
  3. DEPAKENE [Concomitant]
  4. URBANYL [Concomitant]

REACTIONS (4)
  - DRUG INTERACTION [None]
  - HYPERKALAEMIA [None]
  - METABOLIC ACIDOSIS [None]
  - RENAL FAILURE ACUTE [None]
